FAERS Safety Report 7289438-5 (Version None)
Quarter: 2011Q1

REPORT INFORMATION
  Report Type: 
  Country: None (occurrence: None)
  Receive Date: 20110211
  Receipt Date: 20110208
  Transmission Date: 20110831
  Serious: Yes (Hospitalization)
  Sender: FDA-Public Use
  Company Number: AT-ABBOTT-11P-009-0698981-00

PATIENT
  Sex: Male
  Weight: 80 kg

DRUGS (3)
  1. HUMIRA [Suspect]
     Indication: SPONDYLITIS
  2. HUMIRA [Suspect]
     Indication: ANKYLOSING SPONDYLITIS
     Route: 058
  3. NOMEXOR [Concomitant]
     Indication: HYPERTENSION
     Route: 048

REACTIONS (3)
  - ABDOMINAL PAIN [None]
  - SMALL BOWEL ANGIOEDEMA [None]
  - DIARRHOEA [None]
